FAERS Safety Report 10571194 (Version 1)
Quarter: 2014Q4

REPORT INFORMATION
  Report Type: Spontaneous
  Country: US (occurrence: US)
  Receive Date: 20141107
  Receipt Date: 20141107
  Transmission Date: 20150529
  Serious: Yes (Other)
  Sender: FDA-Public Use
  Company Number: US-BAYER-2014-161005

PATIENT
  Sex: Female

DRUGS (1)
  1. MILK OF MAGNESIA ORIGINAL [Suspect]
     Active Substance: MAGNESIUM HYDROXIDE

REACTIONS (8)
  - Dysphagia [Unknown]
  - Constipation [Unknown]
  - Anxiety [Unknown]
  - Vomiting [Unknown]
  - Pain [Unknown]
  - Pyrexia [Unknown]
  - Headache [None]
  - Drug ineffective [None]

NARRATIVE: CASE EVENT DATE: 201410
